FAERS Safety Report 13043308 (Version 14)
Quarter: 2020Q1

REPORT INFORMATION
  Report Type: Report from Study
  Country: DE (occurrence: DE)
  Receive Date: 20161219
  Receipt Date: 20200212
  Transmission Date: 20200409
  Serious: Yes (Other)
  Sender: FDA-Public Use
  Company Number: DE-ROCHE-1869044

PATIENT
  Age: 69 Year
  Sex: Male
  Weight: 60 kg

DRUGS (10)
  1. NOVAMINSULFON [Concomitant]
     Active Substance: METAMIZOLE
     Route: 065
  2. ESBRIET [Suspect]
     Active Substance: PIRFENIDONE
     Indication: IDIOPATHIC PULMONARY FIBROSIS
     Route: 048
     Dates: start: 20150413, end: 201709
  3. PANTOPRAZOL [PANTOPRAZOLE] [Concomitant]
     Active Substance: PANTOPRAZOLE
     Dosage: IN THE EVENING
     Route: 065
  4. GYREX [QUETIAPINE FUMARATE] [Concomitant]
     Active Substance: QUETIAPINE FUMARATE
     Dosage: AT NIGHT
     Route: 065
  5. TALCID [Concomitant]
     Active Substance: HYDROTALCITE
  6. THOMAPYRIN [ACETYLSALICYLIC ACID;CAFFEINE;PARACETAMOL] [Concomitant]
     Active Substance: ACETAMINOPHEN\ASPIRIN\CAFFEINE
     Dosage: AS REQUIRED
     Route: 065
  7. GYREX [QUETIAPINE FUMARATE] [Concomitant]
     Active Substance: QUETIAPINE FUMARATE
     Route: 065
  8. PANTOPRAZOL [PANTOPRAZOLE] [Concomitant]
     Active Substance: PANTOPRAZOLE
     Dosage: IN THE EVENING
     Route: 065
  9. MIRTAZAPIN [Concomitant]
     Active Substance: MIRTAZAPINE
     Route: 065
  10. ESOMEPRAZOL [ESOMEPRAZOLE] [Concomitant]
     Active Substance: ESOMEPRAZOLE
     Dosage: AS REQUIRED
     Route: 065

REACTIONS (22)
  - Dyspnoea exertional [Unknown]
  - Eczema [Recovering/Resolving]
  - Decreased appetite [Not Recovered/Not Resolved]
  - Sensitive skin [Unknown]
  - Respiratory disorder [Recovering/Resolving]
  - Chest pain [Not Recovered/Not Resolved]
  - Asthenia [Not Recovered/Not Resolved]
  - Sleep disorder [Recovered/Resolved]
  - Oxygen saturation decreased [Not Recovered/Not Resolved]
  - Nasopharyngitis [Recovered/Resolved]
  - Gastric disorder [Recovering/Resolving]
  - Photosensitivity reaction [Unknown]
  - Dyspnoea [Not Recovered/Not Resolved]
  - Pulmonary mass [Not Recovered/Not Resolved]
  - Lung neoplasm malignant [Not Recovered/Not Resolved]
  - Fatigue [Not Recovered/Not Resolved]
  - Neoplasm progression [Not Recovered/Not Resolved]
  - Large intestine polyp [Not Recovered/Not Resolved]
  - Idiopathic pulmonary fibrosis [Not Recovered/Not Resolved]
  - Cough [Not Recovered/Not Resolved]
  - Abdominal pain upper [Recovered/Resolved]
  - Weight decreased [Not Recovered/Not Resolved]

NARRATIVE: CASE EVENT DATE: 201509
